FAERS Safety Report 23533138 (Version 5)
Quarter: 2024Q3

REPORT INFORMATION
  Report Type: Report from Study
  Country: MX (occurrence: MX)
  Receive Date: 20240216
  Receipt Date: 20240909
  Transmission Date: 20241016
  Serious: Yes (Other)
  Sender: NOVARTIS
  Company Number: MX-002147023-NVSC2024MX022952

PATIENT
  Age: 42 Year
  Sex: Female
  Weight: 70 kg

DRUGS (7)
  1. GILENYA [Suspect]
     Active Substance: FINGOLIMOD HYDROCHLORIDE
     Indication: Multiple sclerosis
     Dosage: 1 DOSAGE FORM, QD (0.5 MG)
     Route: 048
     Dates: start: 202307, end: 202310
  2. GILENYA [Suspect]
     Active Substance: FINGOLIMOD HYDROCHLORIDE
     Dosage: 1 DOSAGE FORM, Q48H (0.5 MG)
     Route: 048
     Dates: start: 202310
  3. SERTRALINE [Concomitant]
     Active Substance: SERTRALINE HYDROCHLORIDE
     Indication: Personality disorder
     Dosage: 1 DOSAGE FORM, QD
     Route: 048
     Dates: start: 2016, end: 2017
  4. TOPIRAMATE [Concomitant]
     Active Substance: TOPIRAMATE
     Indication: Personality disorder
     Dosage: 1 DOSAGE FORM, QD
     Route: 048
     Dates: start: 2017, end: 2018
  5. CITALOPRAM [Concomitant]
     Active Substance: CITALOPRAM\CITALOPRAM HYDROBROMIDE
     Indication: Personality disorder
     Dosage: 1 DOSAGE FORM, QD
     Route: 048
     Dates: start: 2018, end: 202310
  6. CITALOPRAM [Concomitant]
     Active Substance: CITALOPRAM\CITALOPRAM HYDROBROMIDE
     Dosage: 1 DOSAGE FORM, Q48H
     Route: 048
     Dates: start: 202310
  7. UBIQUINOL [Concomitant]
     Active Substance: UBIQUINOL
     Indication: Vitamin supplementation
     Dosage: 1 DOSAGE FORM (100 MG), Q48H
     Route: 048
     Dates: start: 202404, end: 202408

REACTIONS (14)
  - Liver injury [Recovering/Resolving]
  - Endometriosis [Recovered/Resolved]
  - Headache [Recovering/Resolving]
  - Weight increased [Unknown]
  - Cough [Recovering/Resolving]
  - Rhinorrhoea [Recovering/Resolving]
  - Conjunctivitis [Recovering/Resolving]
  - Tachycardia [Recovered/Resolved]
  - Dry eye [Unknown]
  - Vaginal haemorrhage [Recovered/Resolved]
  - Anxiety [Recovered/Resolved]
  - Pain [Recovered/Resolved]
  - Off label use [Not Recovered/Not Resolved]
  - Sinus bradycardia [Recovered/Resolved]

NARRATIVE: CASE EVENT DATE: 20230701
